FAERS Safety Report 5826733-8 (Version None)
Quarter: 2008Q3

REPORT INFORMATION
  Report Type: 
  Country: None (occurrence: None)
  Receive Date: 20080725
  Receipt Date: 20080714
  Transmission Date: 20090109
  Serious: Yes (Other)
  Sender: FDA-Public Use
  Company Number: 030585

PATIENT
  Age: 38 Year
  Sex: Female
  Weight: 63.5 kg

DRUGS (4)
  1. LOESTRIN 21 1/20 [Suspect]
     Indication: MENSTRUAL DISORDER
     Dosage: 1 TABLET, QD, ORAL
     Route: 048
     Dates: start: 20080621, end: 20080624
  2. LOESTRIN 21 1/20 [Suspect]
     Indication: OFF LABEL USE
     Dosage: 1 TABLET, QD, ORAL
     Route: 048
     Dates: start: 20080621, end: 20080624
  3. LOESTRIN 21 1/20 [Suspect]
     Indication: ORAL CONTRACEPTION
     Dosage: 1 TABLET, QD, ORAL
     Route: 048
     Dates: start: 20080621, end: 20080624
  4. ZYRTEC [Concomitant]

REACTIONS (2)
  - MIGRAINE [None]
  - OFF LABEL USE [None]
